FAERS Safety Report 18962286 (Version 2)
Quarter: 2021Q2

REPORT INFORMATION
  Report Type: Report from Study
  Country: AU (occurrence: AU)
  Receive Date: 20210302
  Receipt Date: 20210407
  Transmission Date: 20210717
  Serious: Yes (Hospitalization)
  Sender: FDA-Public Use
  Company Number: AU-REGENERON PHARMACEUTICALS, INC.-2021-29001

PATIENT

DRUGS (1)
  1. EYLEA [Suspect]
     Active Substance: AFLIBERCEPT
     Indication: NEOVASCULAR AGE-RELATED MACULAR DEGENERATION
     Dosage: UNKNOWN TOTAL NUMBER OF DOSES OF EYLEA
     Route: 031
     Dates: start: 20190527

REACTIONS (4)
  - Hospitalisation [Unknown]
  - Confusional state [Unknown]
  - Malaise [Unknown]
  - Cerebral disorder [Unknown]
